FAERS Safety Report 7778068-4 (Version None)
Quarter: 2011Q3

REPORT INFORMATION
  Report Type: 
  Country: None (occurrence: None)
  Receive Date: 20110926
  Receipt Date: 20110920
  Transmission Date: 20111222
  Serious: Yes (Other)
  Sender: FDA-Public Use
  Company Number: BR-SANOFI-AVENTIS-2011SA000159

PATIENT
  Age: 34 Year
  Sex: Female
  Weight: 60 kg

DRUGS (3)
  1. NOVORAPID [Concomitant]
     Indication: TYPE 1 DIABETES MELLITUS
     Dosage: DEPENDS ON THE GLYCEMIA LEVEL (FROM 16 TO 18 IU/DAY)
     Route: 058
  2. NPH INSULIN [Concomitant]
     Indication: TYPE 1 DIABETES MELLITUS
     Route: 058
     Dates: start: 20100901
  3. ENOXAPARIN SODIUM [Suspect]
     Indication: ANTIPHOSPHOLIPID SYNDROME
     Route: 058
     Dates: start: 20101001

REACTIONS (4)
  - OLIGOHYDRAMNIOS [None]
  - C-REACTIVE PROTEIN ABNORMAL [None]
  - FIBRIN D DIMER INCREASED [None]
  - MATERNAL EXPOSURE DURING PREGNANCY [None]
